FAERS Safety Report 6524869-X (Version None)
Quarter: 2009Q4

REPORT INFORMATION
  Report Type: 
  Country: None (occurrence: None)
  Receive Date: 20091228
  Receipt Date: 20091228
  Transmission Date: 20100525
  Serious: No
  Sender: FDA-Public Use
  Company Number: None

PATIENT
  Age: 27 Year
  Sex: Male
  Weight: 83.9154 kg

DRUGS (1)
  1. COLD REMEDY GEL SWABS [Suspect]
     Dosage: ONE WEEK
     Dates: start: 20080101, end: 20080101

REACTIONS (1)
  - ANOSMIA [None]
